FAERS Safety Report 5460037-0 (Version None)
Quarter: 2007Q3

REPORT INFORMATION
  Report Type: 
  Country: None (occurrence: None)
  Receive Date: 20070919
  Receipt Date: 20070605
  Transmission Date: 20080115
  Serious: Yes (Other)
  Sender: FDA-Public Use
  Company Number: US-ASTRAZENECA-2007UW11059

PATIENT
  Age: 17 Year
  Sex: Male
  Weight: 67.7 kg

DRUGS (4)
  1. SEROQUEL [Suspect]
     Indication: BIPOLAR I DISORDER
     Route: 048
     Dates: start: 20070410, end: 20070423
  2. SEROQUEL [Suspect]
     Route: 048
  3. FISH OIL [Concomitant]
  4. ATIVAN [Concomitant]
     Indication: ANXIETY
     Route: 060
     Dates: start: 20070305

REACTIONS (4)
  - BIPOLAR DISORDER [None]
  - EXTRAPYRAMIDAL DISORDER [None]
  - MANIA [None]
  - TARDIVE DYSKINESIA [None]
